FAERS Safety Report 4533623-X (Version None)
Quarter: 2004Q4

REPORT INFORMATION
  Report Type: 
  Country: None (occurrence: None)
  Receive Date: 20041221
  Receipt Date: 20041214
  Transmission Date: 20050328
  Serious: Yes (Other)
  Sender: FDA-Public Use
  Company Number: US-BRISTOL-MYERS SQUIBB COMPANY-12794616

PATIENT
  Age: 62 Year
  Sex: Male
  Weight: 79 kg

DRUGS (4)
  1. CETUXIMAB [Suspect]
     Indication: NON-SMALL CELL LUNG CANCER
     Dosage: 1ST DOSE ON 01-NOV-2004 OF 400 MG/M2. THEN WEEKLY 250 MG/M2 WEEKLY FOR 7 WEEKS.
     Route: 042
  2. PACLITAXEL [Suspect]
     Indication: NON-SMALL CELL LUNG CANCER
  3. CARBOPLATIN [Suspect]
     Indication: NON-SMALL CELL LUNG CANCER
  4. RADIATION THERAPY [Suspect]
     Indication: NON-SMALL CELL LUNG CANCER

REACTIONS (4)
  - AMAUROSIS FUGAX [None]
  - CEREBRAL ISCHAEMIA [None]
  - COAGULOPATHY [None]
  - EMBOLISM [None]
